FAERS Safety Report 12724795 (Version 1)
Quarter: 2016Q3

REPORT INFORMATION
  Report Type: Report from Study
  Country: ES (occurrence: ES)
  Receive Date: 20160908
  Receipt Date: 20160908
  Transmission Date: 20161109
  Serious: Yes (Hospitalization, Other)
  Sender: FDA-Public Use
  Company Number: ES-PFIZER INC-2016414415

PATIENT
  Age: 61 Year
  Sex: Female

DRUGS (5)
  1. HYDRAPRES [Interacting]
     Active Substance: HYDRALAZINE HYDROCHLORIDE
     Indication: HYPERTENSIVE CRISIS
     Dosage: 75 MG, 1X/DAY
     Route: 048
     Dates: start: 20150701, end: 20150708
  2. LISINOPRIL. [Interacting]
     Active Substance: LISINOPRIL
     Indication: HYPERTENSIVE CRISIS
     Dosage: 20 MG, 1X/DAY
     Route: 048
     Dates: start: 20150701, end: 20150708
  3. FUROSEMIDE. [Interacting]
     Active Substance: FUROSEMIDE
     Dosage: 80 MG, 1X/DAY
     Route: 048
     Dates: start: 201505, end: 20150708
  4. CARDURA [Suspect]
     Active Substance: DOXAZOSIN MESYLATE
     Indication: HYPERTENSIVE CRISIS
     Dosage: 16 MG, 1X/DAY
     Route: 048
     Dates: start: 20150701, end: 20150708
  5. BOI-K ASPARTICO [Interacting]
     Active Substance: ASPARTIC ACID\POTASSIUM ASCORBATE
     Dosage: 1 DF, 1X/DAY
     Route: 048
     Dates: start: 20150603, end: 20150708

REACTIONS (3)
  - Acute kidney injury [Recovered/Resolved]
  - Drug interaction [Recovered/Resolved]
  - Hyperkalaemia [Recovered/Resolved]

NARRATIVE: CASE EVENT DATE: 20150708
